FAERS Safety Report 12284066 (Version 1)
Quarter: 2016Q2

REPORT INFORMATION
  Report Type: Spontaneous
  Country: CA (occurrence: CA)
  Receive Date: 20160419
  Receipt Date: 20160419
  Transmission Date: 20160815
  Serious: Yes (Other)
  Sender: FDA-Public Use
  Company Number: CA-AMGEN-CANSP2016047089

PATIENT
  Age: 51 Year
  Sex: Female

DRUGS (2)
  1. VALTREX [Suspect]
     Active Substance: VALACYCLOVIR HYDROCHLORIDE
     Indication: GENITAL HERPES
     Dosage: UNK
     Route: 065
  2. ENBREL [Suspect]
     Active Substance: ETANERCEPT
     Indication: ANKYLOSING SPONDYLITIS
     Dosage: 50 MG, UNK
     Route: 058

REACTIONS (14)
  - Genital herpes [Unknown]
  - Nasal congestion [Unknown]
  - Productive cough [Unknown]
  - Malaise [Unknown]
  - Feeling hot [Unknown]
  - Sinus congestion [Unknown]
  - Nasopharyngitis [Unknown]
  - Chills [Unknown]
  - Pyrexia [Unknown]
  - Oral herpes [Unknown]
  - Ankylosing spondylitis [Unknown]
  - Herpes virus infection [Unknown]
  - Cough [Unknown]
  - Headache [Unknown]
